FAERS Safety Report 4388085-2 (Version None)
Quarter: 2004Q2

REPORT INFORMATION
  Report Type: 
  Country: None (occurrence: None)
  Receive Date: 20040623
  Receipt Date: 20040604
  Transmission Date: 20050107
  Serious: Yes (Death)
  Sender: FDA-Public Use
  Company Number: US_0402101047

PATIENT
  Age: 35 Year
  Sex: Male

DRUGS (5)
  1. XIGRIS [Suspect]
     Indication: SEPSIS SYNDROME
  2. CIPROFLOXACIN [Concomitant]
  3. AMPICILLIN SODIUM/SULBACTAM SODIUM [Concomitant]
  4. METRONIDAZOLE [Concomitant]
  5. VASOPRESSIN INJECTION [Concomitant]

REACTIONS (1)
  - DEATH [None]
